FAERS Safety Report 18457942 (Version 4)
Quarter: 2022Q2

REPORT INFORMATION
  Report Type: Spontaneous
  Country: US (occurrence: US)
  Receive Date: 20201103
  Receipt Date: 20220622
  Transmission Date: 20220721
  Serious: Yes (Other)
  Sender: FDA-Public Use
  Company Number: US-PFIZER INC-2020268865

PATIENT
  Age: 66 Year
  Sex: Female

DRUGS (1)
  1. PHENYTOIN SODIUM [Suspect]
     Active Substance: PHENYTOIN SODIUM
     Dosage: UNK, 2X/DAY(2 CAPSULES TWICE DAILY)

REACTIONS (2)
  - Seizure [Unknown]
  - Drug level decreased [Unknown]
